FAERS Safety Report 12960507 (Version 3)
Quarter: 2017Q1

REPORT INFORMATION
  Report Type: Report from Study
  Country: DE (occurrence: DE)
  Receive Date: 20161121
  Receipt Date: 20170127
  Transmission Date: 20170428
  Serious: Yes (Hospitalization)
  Sender: FDA-Public Use
  Company Number: DE-TEVA-712736GER

PATIENT
  Age: 80 Year
  Sex: Female
  Weight: 74.2 kg

DRUGS (15)
  1. ALENDRONIC ACID [Concomitant]
     Active Substance: ALENDRONIC ACID
     Indication: OSTEOPOROSIS
     Route: 065
     Dates: start: 201605
  2. SEDARISTON TROPFEN [Concomitant]
     Dosage: BEFORE SLEEP
     Route: 048
     Dates: start: 20160802
  3. CYCLOPHOSPHAMID [Suspect]
     Active Substance: CYCLOPHOSPHAMIDE
     Indication: NON-HODGKIN^S LYMPHOMA
     Dosage: LAST DOSE PRIOR TO SAE: 02-NOV-2016
     Route: 042
     Dates: start: 20160809, end: 20161102
  4. IRBESARTAN-COMP 150/12.5 MG [Concomitant]
     Dosage: 2 DOSAGE FORMS DAILY; 1 DF = 150 MG IRBESARTAN AND 12.5 MG HYDROCHLOROTHIAZIDE
     Route: 048
     Dates: start: 1996
  5. VITAMIN D [Concomitant]
     Active Substance: CHOLECALCIFEROL
     Indication: OSTEOPOROSIS
     Route: 065
     Dates: start: 201605
  6. NEBIVOLOL. [Concomitant]
     Active Substance: NEBIVOLOL
     Dosage: 10 MILLIGRAM DAILY;
     Route: 048
     Dates: start: 1996
  7. RITUXIMAB [Suspect]
     Active Substance: RITUXIMAB
     Indication: NON-HODGKIN^S LYMPHOMA
     Dosage: LAST DOSE PRIOR TO SAE: 01-NOV-2016
     Route: 042
     Dates: start: 20160808, end: 20161101
  8. NOVOPULMON 200 [Concomitant]
     Dosage: 1 DOSAGE FORMS DAILY;
     Route: 055
     Dates: start: 2006
  9. VINCRISTINE [Suspect]
     Active Substance: VINCRISTINE
     Indication: NON-HODGKIN^S LYMPHOMA
     Dosage: LAST DOSE PRIOR TO SAE: 02-NOV-2016
     Route: 042
     Dates: start: 20160809, end: 20161102
  10. DEKRISTOL 20000 IE [Concomitant]
     Indication: OSTEOPOROSIS
     Route: 065
     Dates: start: 201605
  11. LATANOPROST. [Concomitant]
     Active Substance: LATANOPROST
     Dosage: 50 MICROGRAM DAILY;
     Route: 047
     Dates: start: 2002
  12. ADRIAMYCIN [Suspect]
     Active Substance: DOXORUBICIN HYDROCHLORIDE
     Dosage: LAST DOSE PRIOR TO SAE: 02-NOV-2016
     Route: 042
     Dates: start: 20160809, end: 20161102
  13. SALBUTAMOL DA [Concomitant]
     Route: 055
     Dates: start: 2006
  14. LONQUEX [Suspect]
     Active Substance: LIPEGFILGRASTIM
     Indication: PROPHYLAXIS
     Dosage: DATE OF LAST DOSE PRIOR TO SAE: 03-NOV-2016
     Route: 042
     Dates: start: 20160810, end: 20161103
  15. PANTOPRAZOL [Concomitant]
     Active Substance: PANTOPRAZOLE SODIUM
     Dosage: 40 MILLIGRAM DAILY;
     Route: 048

REACTIONS (2)
  - Arrhythmia [Recovered/Resolved]
  - Atrial fibrillation [Recovered/Resolved]

NARRATIVE: CASE EVENT DATE: 20161109
